FAERS Safety Report 18683203 (Version 5)
Quarter: 2021Q3

REPORT INFORMATION
  Report Type: Spontaneous
  Country: US (occurrence: US)
  Receive Date: 20201230
  Receipt Date: 20210706
  Transmission Date: 20211014
  Serious: Yes (Hospitalization)
  Sender: FDA-Public Use
  Company Number: US-IPSEN BIOPHARMACEUTICALS, INC.-2020-25112

PATIENT
  Sex: Female
  Weight: 69.85 kg

DRUGS (24)
  1. ZOFRAN [Concomitant]
     Active Substance: ONDANSETRON HYDROCHLORIDE
  2. SPIRONOLACTONE. [Concomitant]
     Active Substance: SPIRONOLACTONE
  3. AMLODIPINE [Concomitant]
     Active Substance: AMLODIPINE BESYLATE
  4. LEVSIN [Concomitant]
     Active Substance: HYOSCYAMINE SULFATE
  5. SOMATULINE DEPOT [Suspect]
     Active Substance: LANREOTIDE ACETATE
     Indication: OFF LABEL USE
  6. SCOPOLAMINE [Concomitant]
     Active Substance: SCOPOLAMINE
     Dosage: PATCH
  7. DRONABINOL. [Concomitant]
     Active Substance: DRONABINOL
  8. IRON [Concomitant]
     Active Substance: IRON
  9. SOMATULINE DEPOT [Suspect]
     Active Substance: LANREOTIDE ACETATE
     Indication: NEUROENDOCRINE TUMOUR
     Route: 058
     Dates: start: 2020
  10. MELATONIN [Concomitant]
     Active Substance: MELATONIN
  11. MELOXICAM. [Concomitant]
     Active Substance: MELOXICAM
  12. SOMATULINE DEPOT [Suspect]
     Active Substance: LANREOTIDE ACETATE
     Indication: GROWTH HORMONE DEFICIENCY
  13. TOPAMAX [Concomitant]
     Active Substance: TOPIRAMATE
  14. AMITIZA [Concomitant]
     Active Substance: LUBIPROSTONE
  15. PANTOPRAZOLE SODIUM. [Concomitant]
     Active Substance: PANTOPRAZOLE SODIUM
  16. CLARITIN [Concomitant]
     Active Substance: LORATADINE
  17. IBUPROFEN. [Concomitant]
     Active Substance: IBUPROFEN
  18. CYCLOBENZAPRINE. [Concomitant]
     Active Substance: CYCLOBENZAPRINE
  19. ALBUTEROL SULFATE. [Concomitant]
     Active Substance: ALBUTEROL SULFATE
  20. HYDROMORPHONE HCL [Concomitant]
     Active Substance: HYDROMORPHONE HYDROCHLORIDE
  21. VITAMIN D3 [Concomitant]
     Active Substance: CHOLECALCIFEROL
  22. COLESTIPOL [Concomitant]
     Active Substance: COLESTIPOL
  23. OCTREOTIDE. [Concomitant]
     Active Substance: OCTREOTIDE
  24. DULOXETINE. [Concomitant]
     Active Substance: DULOXETINE

REACTIONS (7)
  - Product dose omission issue [Unknown]
  - Pain [Unknown]
  - Diarrhoea [Unknown]
  - Diverticulitis [Unknown]
  - Hypertension [Unknown]
  - Muscular weakness [Unknown]
  - Off label use [Unknown]
